FAERS Safety Report 13044065 (Version 1)
Quarter: 2016Q4

REPORT INFORMATION
  Report Type: Spontaneous
  Country: US (occurrence: US)
  Receive Date: 20161220
  Receipt Date: 20161220
  Transmission Date: 20170207
  Serious: No
  Sender: FDA-Public Use
  Company Number: US-ROCHE-1020730

PATIENT
  Age: 75 Year
  Sex: Male
  Weight: 73.32 kg

DRUGS (5)
  1. ZELBORAF [Suspect]
     Active Substance: VEMURAFENIB
     Indication: MALIGNANT MELANOMA
     Route: 048
     Dates: start: 20110712
  2. CENTRUM SILVER [Concomitant]
     Active Substance: MINERALS\VITAMINS
     Indication: HYPOVITAMINOSIS
     Route: 048
  3. VITAMIN D [Concomitant]
     Active Substance: CHOLECALCIFEROL
     Route: 048
  4. HYDROCODONE [Concomitant]
     Active Substance: HYDROCODONE
     Indication: PAIN
     Route: 048
     Dates: start: 20110912
  5. TOPROL XL [Concomitant]
     Active Substance: METOPROLOL SUCCINATE
     Indication: BLOOD PRESSURE MEASUREMENT
     Route: 048

REACTIONS (15)
  - Arthralgia [Unknown]
  - Diarrhoea [Unknown]
  - Pain in extremity [Unknown]
  - Flushing [Recovered/Resolved]
  - Rash pruritic [Unknown]
  - Alopecia [Unknown]
  - Decreased appetite [Unknown]
  - Fatigue [Unknown]
  - Joint swelling [Unknown]
  - Mass [Unknown]
  - Vision blurred [Unknown]
  - Abdominal pain upper [Recovered/Resolved]
  - Hyperkeratosis [Unknown]
  - Dysgeusia [Unknown]
  - Headache [Unknown]

NARRATIVE: CASE EVENT DATE: 20110912
